FAERS Safety Report 13805799 (Version 1)
Quarter: 2017Q3

REPORT INFORMATION
  Report Type: Spontaneous
  Country: US (occurrence: US)
  Receive Date: 20170728
  Receipt Date: 20170728
  Transmission Date: 20171127
  Serious: Yes (Other)
  Sender: FDA-Public Use
  Company Number: US-PFIZER INC-2017325017

PATIENT
  Sex: Female

DRUGS (2)
  1. METHOTREXATE. [Suspect]
     Active Substance: METHOTREXATE
     Dosage: 8 DF, WEEKLY
  2. GABAPENTIN. [Suspect]
     Active Substance: GABAPENTIN
     Dosage: 800 MG, 3X/DAY

REACTIONS (9)
  - Joint injury [Unknown]
  - Arthralgia [Unknown]
  - Nasal injury [Unknown]
  - Fatigue [Unknown]
  - Pain [Unknown]
  - Fractured coccyx [Unknown]
  - Tenderness [Unknown]
  - Fall [Unknown]
  - Weight increased [Unknown]
